FAERS Safety Report 17478805 (Version 2)
Quarter: 2020Q1

REPORT INFORMATION
  Report Type: Report from Study
  Country: BR (occurrence: BR)
  Receive Date: 20200228
  Receipt Date: 20200306
  Transmission Date: 20200409
  Serious: Yes (Hospitalization, Other)
  Sender: FDA-Public Use
  Company Number: BR-JNJFOC-20190504466

PATIENT
  Sex: Female
  Weight: 45 kg

DRUGS (2)
  1. STELARA [Suspect]
     Active Substance: USTEKINUMAB
     Route: 058
     Dates: start: 20190225, end: 20191118
  2. STELARA [Suspect]
     Active Substance: USTEKINUMAB
     Indication: CROHN^S DISEASE
     Route: 058
     Dates: start: 20190225, end: 20191118

REACTIONS (11)
  - Chest pain [Unknown]
  - Vocal cord disorder [Unknown]
  - Migraine [Unknown]
  - Renal injury [Unknown]
  - Arthralgia [Unknown]
  - Dry eye [Unknown]
  - Oesophageal stenosis [Not Recovered/Not Resolved]
  - Urinary tract infection [Unknown]
  - Aphthous ulcer [Unknown]
  - Crohn^s disease [Unknown]
  - Asthenia [Unknown]

NARRATIVE: CASE EVENT DATE: 2019
